FAERS Safety Report 4986897-5 (Version None)
Quarter: 2006Q2

REPORT INFORMATION
  Report Type: 
  Country: None (occurrence: None)
  Receive Date: 20060501
  Receipt Date: 20060419
  Transmission Date: 20061013
  Serious: Yes (Other)
  Sender: FDA-Public Use
  Company Number: PHBS2006SE05792

PATIENT
  Age: 76 Year
  Sex: Male

DRUGS (13)
  1. ZOMETA [Suspect]
     Indication: MULTIPLE MYELOMA
     Route: 065
     Dates: start: 20011201
  2. DOLCONTIN [Concomitant]
  3. ALLOPURINOL [Concomitant]
  4. ALKERAN [Concomitant]
  5. ALVEDON [Concomitant]
  6. PROPAVAN [Concomitant]
  7. NEORECORMON [Concomitant]
  8. DELTISON [Concomitant]
  9. FOLACIN [Concomitant]
  10. BEHEPAN [Concomitant]
  11. WARAN [Concomitant]
  12. NORMORIX [Concomitant]
  13. AREDIA [Suspect]
     Indication: MULTIPLE MYELOMA
     Dates: start: 20011001

REACTIONS (1)
  - OSTEONECROSIS [None]
